FAERS Safety Report 24221334 (Version 1)
Quarter: 2024Q3

REPORT INFORMATION
  Report Type: Spontaneous
  Country: GB (occurrence: GB)
  Receive Date: 20240819
  Receipt Date: 20240819
  Transmission Date: 20241017
  Serious: Yes (Other)
  Sender: NOVO NORDISK
  Company Number: None

PATIENT
  Age: 66 Year
  Sex: Female
  Weight: 87 kg

DRUGS (17)
  1. SEMAGLUTIDE [Interacting]
     Active Substance: SEMAGLUTIDE
     Indication: Product used for unknown indication
     Dosage: 3 MG, QD (DOSE TO BE TAKEN ON AN EMPTY STOMACH)
     Route: 048
     Dates: start: 20240618
  2. SEMAGLUTIDE [Interacting]
     Active Substance: SEMAGLUTIDE
     Dosage: 7 MG, QD (DOSE TO BE TAKEN ON AN EMPTY STOMACH)
     Route: 048
  3. SEMAGLUTIDE [Interacting]
     Active Substance: SEMAGLUTIDE
     Dosage: 14MG (DOSE TO BE TAKEN ON AN EMPTY STOMACH)
     Route: 048
  4. METHOTREXATE [Interacting]
     Active Substance: METHOTREXATE
     Indication: Product used for unknown indication
     Dosage: 17.5 MG, QW(ONCE WEEKLY BY INJECTION)
  5. ALENDRONIC ACID [Concomitant]
     Active Substance: ALENDRONIC ACID
     Indication: Product used for unknown indication
     Dosage: UNK
  6. AMITRIPTYLINE [Concomitant]
     Active Substance: AMITRIPTYLINE
     Indication: Product used for unknown indication
     Dosage: 50MG
  7. CETIRIZINE [Concomitant]
     Active Substance: CETIRIZINE HYDROCHLORIDE
     Indication: Product used for unknown indication
     Dosage: 10MG
  8. CHOLECALCIFEROL [Concomitant]
     Active Substance: CHOLECALCIFEROL
     Indication: Product used for unknown indication
     Dosage: UNK (40,000 A MONTH)
  9. FOLIC ACID [Concomitant]
     Active Substance: FOLIC ACID
     Indication: Product used for unknown indication
     Dosage: 5MG
  10. IBUPROFEN [Concomitant]
     Active Substance: IBUPROFEN
     Indication: Product used for unknown indication
     Dosage: UNK GEL 5%
  11. OMEPRAZOLE [Concomitant]
     Active Substance: OMEPRAZOLE
     Indication: Product used for unknown indication
     Dosage: 20 MG, BID
  12. ACETAMINOPHEN [Concomitant]
     Active Substance: ACETAMINOPHEN
     Indication: Product used for unknown indication
     Dosage: UNK
  13. PREDNISOLONE [Concomitant]
     Active Substance: PREDNISOLONE
     Indication: Product used for unknown indication
     Dosage: 5 MG, QD
  14. ROSUVASTATIN [Concomitant]
     Active Substance: ROSUVASTATIN\ROSUVASTATIN CALCIUM
     Indication: Product used for unknown indication
     Dosage: UNK
  15. SULFASALAZINE [Concomitant]
     Active Substance: SULFASALAZINE
     Indication: Product used for unknown indication
     Dosage: 1 G, BID
  16. SPIKEVAX [Concomitant]
     Dosage: 0.5 ML
     Route: 030
     Dates: start: 20240503
  17. DICLOFENAC DIETHYLAMINE [Concomitant]
     Active Substance: DICLOFENAC DIETHYLAMINE
     Indication: Product used for unknown indication
     Dosage: 100GB (APPLY THREE OR FOUR TIMES A DAY)
     Dates: start: 20240726

REACTIONS (5)
  - Pruritus [Unknown]
  - Mouth ulceration [Recovering/Resolving]
  - Acne [Unknown]
  - Nausea [Unknown]
  - Drug interaction [Unknown]
